FAERS Safety Report 6399978-9 (Version None)
Quarter: 2009Q4

REPORT INFORMATION
  Report Type: 
  Country: None (occurrence: None)
  Receive Date: 20091008
  Receipt Date: 20091008
  Transmission Date: 20100525
  Serious: Yes (Hospitalization)
  Sender: FDA-Public Use
  Company Number: None

PATIENT
  Sex: Male

DRUGS (2)
  1. TRUVADA [Suspect]
     Indication: HIV INFECTION
     Dosage: 1 TAB DAILY PO
     Route: 048
     Dates: start: 20080318, end: 20080717
  2. EFAVIRENZ [Suspect]
     Dosage: 600MG DAILY PO
     Route: 048

REACTIONS (1)
  - RENAL FAILURE ACUTE [None]
